FAERS Safety Report 12395150 (Version 1)
Quarter: 2016Q2

REPORT INFORMATION
  Report Type: Spontaneous
  Country: US (occurrence: US)
  Receive Date: 20160523
  Receipt Date: 20160523
  Transmission Date: 20160815
  Serious: Yes (Other)
  Sender: FDA-Public Use
  Company Number: US-ENDO PHARMACEUTICALS INC.-2016-003333

PATIENT
  Sex: Female
  Weight: 100.33 kg

DRUGS (1)
  1. PREDNISONE TABLETS [Suspect]
     Active Substance: PREDNISONE
     Indication: RHEUMATOID ARTHRITIS
     Route: 065

REACTIONS (6)
  - Palpitations [Unknown]
  - Anxiety [Unknown]
  - Hyperhidrosis [Unknown]
  - Drug ineffective [Recovered/Resolved]
  - Seizure [Unknown]
  - Drug hypersensitivity [Unknown]
